FAERS Safety Report 20953726 (Version 3)
Quarter: 2022Q3

REPORT INFORMATION
  Report Type: Spontaneous
  Country: CZ (occurrence: CZ)
  Receive Date: 20220613
  Receipt Date: 20220803
  Transmission Date: 20221026
  Serious: Yes (Other)
  Sender: FDA-Public Use
  Company Number: CZ-BEH-2022146398

PATIENT
  Sex: Female
  Weight: 55 kg

DRUGS (8)
  1. HAEMOCOMPLETTAN P [Suspect]
     Active Substance: FIBRINOGEN HUMAN
     Indication: Hypofibrinogenaemia
     Dosage: 6 GRAM
     Route: 042
     Dates: start: 202201, end: 202202
  2. HAEMOCOMPLETTAN P [Suspect]
     Active Substance: FIBRINOGEN HUMAN
     Indication: Hysterectomy
     Dosage: 5 GRAM
     Route: 065
     Dates: start: 20220317
  3. HAEMOCOMPLETTAN P [Suspect]
     Active Substance: FIBRINOGEN HUMAN
     Dosage: 2 GRAM
     Route: 065
     Dates: start: 20220318
  4. HAEMOCOMPLETTAN P [Suspect]
     Active Substance: FIBRINOGEN HUMAN
     Dosage: UNK
     Route: 065
  5. HAEMOCOMPLETTAN P [Suspect]
     Active Substance: FIBRINOGEN HUMAN
     Dosage: UNK
     Route: 065
  6. HAEMOCOMPLETTAN P [Suspect]
     Active Substance: FIBRINOGEN HUMAN
     Dosage: UNK
     Route: 065
     Dates: start: 202008
  7. ELIQUIS [Concomitant]
     Active Substance: APIXABAN
  8. HEPARIN CALCIUM [Concomitant]
     Active Substance: HEPARIN CALCIUM

REACTIONS (5)
  - Coagulation factor VII level decreased [Recovered/Resolved]
  - Prothrombin time prolonged [Recovered/Resolved]
  - Coagulation factor VII level decreased [Recovered/Resolved]
  - Prothrombin time prolonged [Unknown]
  - Coagulation factor VII level decreased [Recovered/Resolved]

NARRATIVE: CASE EVENT DATE: 20200801
